FAERS Safety Report 5102324-1 (Version None)
Quarter: 2006Q3

REPORT INFORMATION
  Report Type: 
  Country: None (occurrence: None)
  Receive Date: 20060908
  Receipt Date: 20060821
  Transmission Date: 20061208
  Serious: Yes (Other)
  Sender: FDA-Public Use
  Company Number: US200608004269

PATIENT
  Age: 65 Year
  Sex: Male

DRUGS (1)
  1. XIGRIS [Suspect]
     Indication: SEPSIS
     Dates: start: 20060819, end: 20060821

REACTIONS (2)
  - HAEMOGLOBIN DECREASED [None]
  - HAEMORRHAGE [None]
